FAERS Safety Report 21723945 (Version 1)
Quarter: 2022Q4

REPORT INFORMATION
  Report Type: Report from Study
  Country: US (occurrence: US)
  Receive Date: 20221213
  Receipt Date: 20221213
  Transmission Date: 20230112
  Serious: Yes (Death)
  Sender: FDA-Public Use
  Company Number: US-PFIZER INC-PV202200119998

PATIENT
  Age: 7 Year
  Sex: Male
  Weight: 24.7 kg

DRUGS (17)
  1. TEMSIROLIMUS [Suspect]
     Active Substance: TEMSIROLIMUS
     Dosage: 15 MG/M2 OR PER PROTOCOL D1,8,15
     Dates: end: 20220421
  2. TEMSIROLIMUS [Suspect]
     Active Substance: TEMSIROLIMUS
     Dosage: CYCLES 5-10 (21 DAY CYCLE):  15MG/M2 OR PER PROTOCOL ON D1,8,15 OF C8-10
  3. TEMSIROLIMUS [Suspect]
     Active Substance: TEMSIROLIMUS
     Dosage: .C 11-14 (C= 21 DAYS) 15MG/M2 OR PER PROTOCOL D1,8,15
  4. VINCRISTINE SULFATE [Suspect]
     Active Substance: VINCRISTINE SULFATE
     Dosage: 1.5 MG/M2, CYCLIC, D1,8,15 OR PER PROTOCOL
     Dates: end: 20220405
  5. VINCRISTINE SULFATE [Suspect]
     Active Substance: VINCRISTINE SULFATE
     Dosage: 1.5MG/M2 OR PER PROTOCOL ON D1 OF C5+10 AND D1,8 OF C6,7,9 AND D1,8,15 OF C8
  6. VINCRISTINE SULFATE [Suspect]
     Active Substance: VINCRISTINE SULFATE
     Dosage: 1.5MG/M2 OR PER PROTOCOL D1,8,15 OF C11 AND D1 OF C12,14 AND D1,8 OF C13
  7. CAMPTOSAR [Suspect]
     Active Substance: IRINOTECAN HYDROCHLORIDE
     Dosage: 50MG/M2 OR PER PROTOCOL ON D1-5 OF C2 AND 4
     Dates: end: 20220311
  8. CAMPTOSAR [Suspect]
     Active Substance: IRINOTECAN HYDROCHLORIDE
     Dosage: 50 MG/M2 FOR PER PROTOCOL ON D1-5 OF C6,7,9UNK
  9. CAMPTOSAR [Suspect]
     Active Substance: IRINOTECAN HYDROCHLORIDE
     Dosage: 50MG/M2 OR PER PROTOCOL ON D1-5 OF C11,13
  10. CYCLOPHOSPHAMIDE [Suspect]
     Active Substance: CYCLOPHOSPHAMIDE
     Dosage: 1200MG/M2 OR PER PROTOCOL ON D1 OF C1 AND 3
     Dates: end: 20220405
  11. CYCLOPHOSPHAMIDE [Suspect]
     Active Substance: CYCLOPHOSPHAMIDE
     Dosage: 1200MG/M2 OR PER PROTOCOL ON D1 OF C5, 8,10
  12. CYCLOPHOSPHAMIDE [Suspect]
     Active Substance: CYCLOPHOSPHAMIDE
     Dosage: 1200MG/M2 OR PER PROTOCOL ON D1 OF C12,14
  13. CYCLOPHOSPHAMIDE [Suspect]
     Active Substance: CYCLOPHOSPHAMIDE
     Dosage: MAINTENANCE (CYCLE = 28 DAYS)
  14. DACTINOMYCIN [Suspect]
     Active Substance: DACTINOMYCIN
     Dosage: 0.05MG/KG OR PER PROTOCOL ON D1 OF C1 AND 3
     Dates: end: 20220405
  15. DACTINOMYCIN [Suspect]
     Active Substance: DACTINOMYCIN
     Dosage: 0.05MG/KG OR PER PROTOCOL ON D1 OF C5,8,10
  16. DACTINOMYCIN [Suspect]
     Active Substance: DACTINOMYCIN
     Dosage: 0.05MG/KG OR PER PROTOCOL ON D1 OF C12,14
  17. VINORELBINE TARTRATE [Suspect]
     Active Substance: VINORELBINE TARTRATE
     Dosage: MAINTENANCE (CYCLE = 28 DAYS):25 MG/M2 OR PER PROTOCOL ON D1, 8, 15

REACTIONS (1)
  - Death [Fatal]

NARRATIVE: CASE EVENT DATE: 20221110
